FAERS Safety Report 12607741 (Version 1)
Quarter: 2016Q3

REPORT INFORMATION
  Report Type: Spontaneous
  Country: US (occurrence: US)
  Receive Date: 20160729
  Receipt Date: 20160729
  Transmission Date: 20161109
  Serious: No
  Sender: FDA-Public Use
  Company Number: US-BAYER-2016-147114

PATIENT
  Age: 69 Year
  Sex: Male

DRUGS (2)
  1. GADAVIST [Suspect]
     Active Substance: GADOBUTROL
     Indication: METASTASES TO CENTRAL NERVOUS SYSTEM
  2. GADAVIST [Suspect]
     Active Substance: GADOBUTROL
     Indication: LUNG NEOPLASM MALIGNANT
     Dosage: 10 ML, ONCE
     Route: 042
     Dates: start: 20160726, end: 20160726

REACTIONS (2)
  - Vomiting [None]
  - Nausea [None]

NARRATIVE: CASE EVENT DATE: 20160726
